FAERS Safety Report 8075867-9 (Version None)
Quarter: 2012Q1

REPORT INFORMATION
  Report Type: 
  Country: None (occurrence: None)
  Receive Date: 20120127
  Receipt Date: 20120123
  Transmission Date: 20120608
  Serious: No
  Sender: FDA-Public Use
  Company Number: US-PFIZER INC-2012019410

PATIENT
  Sex: Female
  Weight: 29.478 kg

DRUGS (2)
  1. GENOTROPIN [Suspect]
     Dosage: 1.3 MG, 1X/DAY
     Dates: start: 20120113
  2. GENOTROPIN [Suspect]
     Indication: GROWTH HORMONE DEFICIENCY
     Dosage: 1.0 AND 1.2 MG ROTATING DOSE DAILY
     Dates: start: 20111001

REACTIONS (1)
  - INJECTION SITE PAIN [None]
